FAERS Safety Report 21352003 (Version 1)
Quarter: 2022Q3

REPORT INFORMATION
  Report Type: Spontaneous
  Country: DE (occurrence: DE)
  Receive Date: 20220920
  Receipt Date: 20220920
  Transmission Date: 20221027
  Serious: Yes (Hospitalization, Other)
  Sender: FDA-Public Use
  Company Number: DE-ADRED-05710-01

PATIENT
  Age: 59 Year
  Sex: Male
  Weight: 125 kg

DRUGS (7)
  1. DALFAMPRIDINE [Suspect]
     Active Substance: DALFAMPRIDINE
     Indication: Product used for unknown indication
     Dosage: 10 MG, 1-0-1-0, RETARD-TABLETS
     Route: 050
  2. TERIFLUNOMIDE [Suspect]
     Active Substance: TERIFLUNOMIDE
     Indication: Product used for unknown indication
     Dosage: 14 MG, 1-0-0-0, TABLETS
     Route: 050
  3. CHOLECALCIFEROL [Concomitant]
     Active Substance: CHOLECALCIFEROL
     Indication: Product used for unknown indication
     Dosage: 20000 IU, ACCORDING TO SCHEME, CAPSULES
     Route: 050
  4. AMLODIPINE BESYLATE [Concomitant]
     Active Substance: AMLODIPINE BESYLATE
     Indication: Product used for unknown indication
     Dosage: 10 MG, 0-0-1-0, TABLETS
     Route: 050
  5. AMLODIPINE\OLMESARTAN [Concomitant]
     Active Substance: AMLODIPINE\OLMESARTAN
     Indication: Product used for unknown indication
     Dosage: 10|31.97 MG, 1-0-0-0, TABLETTEN
     Route: 050
  6. HYDROCHLOROTHIAZIDE\RAMIPRIL [Concomitant]
     Active Substance: HYDROCHLOROTHIAZIDE\RAMIPRIL
     Dosage: 25|5 MG, 1-0-0-0, TABLETTEN
     Route: 050
  7. RAMIPRIL [Concomitant]
     Active Substance: RAMIPRIL
     Indication: Product used for unknown indication
     Dosage: 5 MG, 0-0-1-0, TABLETS
     Route: 050

REACTIONS (5)
  - Atrial fibrillation [Unknown]
  - Oedema peripheral [Unknown]
  - Arrhythmia [Unknown]
  - Palpitations [Unknown]
  - Tachycardia [Unknown]
